FAERS Safety Report 7700883-3 (Version None)
Quarter: 2011Q3

REPORT INFORMATION
  Report Type: 
  Country: None (occurrence: None)
  Receive Date: 20110817
  Receipt Date: 20110808
  Transmission Date: 20111222
  Serious: Yes (Hospitalization)
  Sender: FDA-Public Use
  Company Number: 1000022724

PATIENT
  Age: 63 Year
  Sex: Male

DRUGS (6)
  1. ENALAPRIL MALEATE [Suspect]
     Dosage: 20 MG (20 MG, 1 IN 1 D)
  2. SALMETEROL/FLUTICASONE PROPIONATE (SALMETEROL, FLUTICASONE PROPIONATE) [Concomitant]
  3. FENOTEROL/IPRATROPIUM BROMIDE (FENOTEROL, IPRATROPIUM BROMIDE) (FENOTE [Concomitant]
  4. DILTIAZEM [Suspect]
  5. AMINOPHYLLINE (AMINOPHYLLINE) (AMINOPHYLLINE) [Concomitant]
  6. TIOTROPIUM BROMIDE (TIOTROPIUM BROMIDE) (TIOTROPIUM BROMIDE) [Concomitant]

REACTIONS (5)
  - HAEMATOCRIT INCREASED [None]
  - ASPHYXIA [None]
  - ANGIOEDEMA [None]
  - BLOOD OSMOLARITY INCREASED [None]
  - HAEMOGLOBIN INCREASED [None]
